FAERS Safety Report 14984204 (Version 4)
Quarter: 2019Q4

REPORT INFORMATION
  Report Type: Report from Study
  Country: FR (occurrence: FR)
  Receive Date: 20180607
  Receipt Date: 20191211
  Transmission Date: 20200122
  Serious: Yes (Death, Other)
  Sender: FDA-Public Use
  Company Number: FR-JAZZ-2017-FR-015307

PATIENT

DRUGS (2)
  1. DEFITELIO [Suspect]
     Active Substance: DEFIBROTIDE SODIUM
     Dosage: 20.5 MG/KG, QD
     Dates: start: 20160428, end: 20160526
  2. DEFITELIO [Suspect]
     Active Substance: DEFIBROTIDE SODIUM
     Indication: PROPHYLAXIS
     Dosage: 20.5 MG/KG/DAY
     Route: 042
     Dates: start: 20160420, end: 20160423

REACTIONS (5)
  - Multiple organ dysfunction syndrome [Fatal]
  - Venoocclusive disease [Fatal]
  - Cardio-respiratory arrest [Fatal]
  - Fluid overload [Fatal]
  - Off label use [Unknown]

NARRATIVE: CASE EVENT DATE: 20160420
